FAERS Safety Report 16584705 (Version 3)
Quarter: 2019Q3

REPORT INFORMATION
  Report Type: Spontaneous
  Country: PL (occurrence: PL)
  Receive Date: 20190717
  Receipt Date: 20190808
  Transmission Date: 20191004
  Serious: Yes (Hospitalization, Other)
  Sender: FDA-Public Use
  Company Number: PL-TEVA-2019-PL-1078633

PATIENT
  Age: 76 Year
  Sex: Male

DRUGS (6)
  1. PANTOPRAZOLE [Concomitant]
     Active Substance: PANTOPRAZOLE
     Indication: ACUTE CORONARY SYNDROME
  2. CLOPIDOGREL [Concomitant]
     Active Substance: CLOPIDOGREL BISULFATE
     Indication: ACUTE CORONARY SYNDROME
  3. ATORVASTATIN [Suspect]
     Active Substance: ATORVASTATIN
     Indication: ACUTE CORONARY SYNDROME
     Dosage: 20 MILLIGRAM DAILY;
     Route: 065
  4. NEBIVOLOL. [Concomitant]
     Active Substance: NEBIVOLOL
     Indication: ACUTE CORONARY SYNDROME
  5. ACETYLSALICYLIC ACID [Concomitant]
     Active Substance: ASPIRIN
     Indication: ACUTE CORONARY SYNDROME
  6. RAMIPRIL. [Concomitant]
     Active Substance: RAMIPRIL
     Indication: ACUTE CORONARY SYNDROME

REACTIONS (1)
  - Blood creatine phosphokinase MB increased [Unknown]
